FAERS Safety Report 7598005-5 (Version None)
Quarter: 2011Q3

REPORT INFORMATION
  Report Type: 
  Country: None (occurrence: None)
  Receive Date: 20110708
  Receipt Date: 20110630
  Transmission Date: 20111222
  Serious: Yes (Hospitalization, Other)
  Sender: FDA-Public Use
  Company Number: IT-ABBOTT-11P-083-0717364-02

PATIENT
  Sex: Male
  Weight: 102 kg

DRUGS (6)
  1. HUMIRA [Suspect]
     Route: 058
     Dates: start: 20110405
  2. HUMIRA [Suspect]
     Dosage: ONCE
     Route: 058
  3. COUMADIN [Concomitant]
     Indication: ANTICOAGULANT THERAPY
     Dosage: VARIABLE, DEPENDING ON INR RESULTS
     Dates: start: 20110207
  4. HUMIRA [Suspect]
     Route: 058
     Dates: start: 20100427
  5. HUMIRA [Suspect]
     Indication: CROHN'S DISEASE
     Dosage: ONCE
     Route: 058
     Dates: start: 20090526, end: 20090526
  6. HUMIRA [Suspect]
     Route: 058
     Dates: end: 20100330

REACTIONS (2)
  - RECTAL HAEMORRHAGE [None]
  - ANAEMIA [None]
